FAERS Safety Report 16524382 (Version 1)
Quarter: 2019Q3

REPORT INFORMATION
  Report Type: Spontaneous
  Country: ES (occurrence: ES)
  Receive Date: 20190703
  Receipt Date: 20190703
  Transmission Date: 20191004
  Serious: Yes (Other)
  Sender: FDA-Public Use
  Company Number: ES-TEVA-2019-ES-1072295

PATIENT
  Age: 13 Year
  Sex: Male

DRUGS (2)
  1. BUDESONIDA ALDO-UNION 64 MICROGRAMOS SUSPENSION PARA PULVERIZACION NAS [Concomitant]
  2. AMOXICILINA 500 MG SOLUCI?N/SUSPENSI?N ORAL 30 SOBRES [Suspect]
     Active Substance: AMOXICILLIN
     Indication: SINUSITIS
     Dosage: 50 MG/KG
     Route: 048
     Dates: start: 20180828, end: 20180903

REACTIONS (4)
  - Rash pruritic [Recovered/Resolved]
  - Serum sickness [Recovered/Resolved]
  - Arthritis [Recovered/Resolved]
  - Arthralgia [Recovered/Resolved]

NARRATIVE: CASE EVENT DATE: 20180903
